FAERS Safety Report 12936569 (Version 1)
Quarter: 2016Q4

REPORT INFORMATION
  Report Type: Spontaneous
  Country: DE (occurrence: DE)
  Receive Date: 20161114
  Receipt Date: 20161114
  Transmission Date: 20170207
  Serious: Yes (Other)
  Sender: FDA-Public Use
  Company Number: DE-AMGEN-DEUSP2016158134

PATIENT
  Sex: Male

DRUGS (1)
  1. REPATHA [Suspect]
     Active Substance: EVOLOCUMAB
     Indication: HYPERCHOLESTEROLAEMIA
     Dosage: 140 MG, UNK
     Route: 065

REACTIONS (1)
  - Blood creatine phosphokinase increased [Unknown]
